FAERS Safety Report 25032844 (Version 1)
Quarter: 2025Q1

REPORT INFORMATION
  Report Type: Spontaneous
  Country: US (occurrence: US)
  Receive Date: 20250303
  Receipt Date: 20250303
  Transmission Date: 20250409
  Serious: Yes (Hospitalization, Congenital Anomaly, Other)
  Sender: PURDUE
  Company Number: US-PURDUE PHARMA-USA-2025-0315779

PATIENT
  Sex: Female

DRUGS (2)
  1. OXYCONTIN [Suspect]
     Active Substance: OXYCODONE HYDROCHLORIDE
     Indication: Product used for unknown indication
     Route: 048
  2. MS CONTIN [Suspect]
     Active Substance: MORPHINE SULFATE
     Indication: Product used for unknown indication
     Route: 048

REACTIONS (15)
  - Hospitalisation [Unknown]
  - Congenital anomaly [Unknown]
  - Overdose [Unknown]
  - Drug dependence [Unknown]
  - Coma [Unknown]
  - Learning disability [Unknown]
  - General physical health deterioration [Unknown]
  - Joint swelling [Unknown]
  - Gait disturbance [Unknown]
  - Ocular hyperaemia [Unknown]
  - Dysstasia [Unknown]
  - Dyspnoea [Unknown]
  - Hypertension [Unknown]
  - Anxiety [Unknown]
  - Peripheral swelling [Unknown]

NARRATIVE: CASE EVENT DATE: 20230101
